FAERS Safety Report 9250551 (Version 1)
Quarter: 2013Q1

REPORT INFORMATION
  Report Type: Spontaneous
  Country: US (occurrence: None)
  Receive Date: 20130305
  Receipt Date: 20130305
  Transmission Date: 20140127
  Serious: Yes (Other)
  Sender: FDA-Public Use
  Company Number: 163-21880-12042729

PATIENT
  Age: 93 Year
  Sex: Female

DRUGS (3)
  1. REVLIMID [Suspect]
     Indication: PLASMA CELL MYELOMA
     Dosage: 12/09/2011 - PERMANENTLY DISCONTINUED?1 IN 1 D
     Route: 048
     Dates: start: 20111209
  2. METOPROLOL SUCCINATE(METOPROLOL SUCCINATE)(UNKNOWN) [Concomitant]
  3. SYNTHROID(LEVOTHYROXINE SODIUM)(UNKNOWN) [Concomitant]

REACTIONS (3)
  - Cardiac failure congestive [None]
  - Pneumonia [None]
  - Pancytopenia [None]
